FAERS Safety Report 24085271 (Version 3)
Quarter: 2024Q4

REPORT INFORMATION
  Report Type: Report from Study
  Country: CA (occurrence: CA)
  Receive Date: 20240712
  Receipt Date: 20241217
  Transmission Date: 20250114
  Serious: Yes (Other)
  Sender: PFIZER
  Company Number: CA-PFIZER INC-202400212390

PATIENT
  Age: 41 Year
  Sex: Female

DRUGS (3)
  1. PAXLOVID [Suspect]
     Active Substance: NIRMATRELVIR\RITONAVIR
     Indication: COVID-19 treatment
     Dosage: UNK
  2. OCRELIZUMAB [Suspect]
     Active Substance: OCRELIZUMAB
     Indication: Relapsing-remitting multiple sclerosis
     Dosage: 300 MG, 1 EVERY 14 DAYS
     Route: 042
  3. LOSEC [Concomitant]
     Active Substance: OMEPRAZOLE
     Dosage: UNK

REACTIONS (10)
  - Abdominal discomfort [Recovering/Resolving]
  - COVID-19 [Recovering/Resolving]
  - Diarrhoea [Recovering/Resolving]
  - Fatigue [Recovering/Resolving]
  - Lower respiratory tract infection [Recovering/Resolving]
  - Oesophageal stenosis [Recovering/Resolving]
  - Pain in extremity [Recovering/Resolving]
  - Sinusitis [Recovering/Resolving]
  - Taste disorder [Recovering/Resolving]
  - Tendon disorder [Recovering/Resolving]
